FAERS Safety Report 8463191-1 (Version None)
Quarter: 2012Q2

REPORT INFORMATION
  Report Type: 
  Country: None (occurrence: None)
  Receive Date: 20120625
  Receipt Date: 20120621
  Transmission Date: 20120825
  Serious: Yes (Death)
  Sender: FDA-Public Use
  Company Number: RO-ASTRAZENECA-2012SE41880

PATIENT
  Age: 168 Day
  Sex: Male

DRUGS (7)
  1. DOBUTAMINE HCL [Concomitant]
  2. OXYGEN [Concomitant]
  3. DOPAMINE HCL [Suspect]
  4. IV FLUIDS [Concomitant]
  5. MEROPENEM [Suspect]
     Route: 042
  6. DIURETICS [Concomitant]
  7. NETILMICINA [Concomitant]

REACTIONS (1)
  - CARDIO-RESPIRATORY ARREST [None]
